FAERS Safety Report 10022706 (Version 2)
Quarter: 2014Q2

REPORT INFORMATION
  Report Type: Spontaneous
  Country: FR (occurrence: FR)
  Receive Date: 20140319
  Receipt Date: 20140401
  Transmission Date: 20141212
  Serious: Yes (Life-Threatening, Hospitalization)
  Sender: FDA-Public Use
  Company Number: FR-PFIZER INC-2014077640

PATIENT
  Age: 66 Year
  Sex: Male

DRUGS (4)
  1. ATENOLOL [Suspect]
     Indication: HYPERTENSION
     Dosage: 50 MG, 1X/DAY
     Route: 048
  2. ATENOLOL [Suspect]
     Dosage: 1200 MG, SINGLE
     Route: 048
     Dates: start: 20140201, end: 20140201
  3. LOXEN [Suspect]
     Dosage: 20 MG, 1X/DAY
     Route: 048
  4. LOXEN [Suspect]
     Dosage: 800 MG, SINGLE
     Route: 048
     Dates: start: 20140201, end: 20140201

REACTIONS (3)
  - Vasoplegia syndrome [Unknown]
  - Cardiogenic shock [Unknown]
  - Intentional product misuse [Unknown]
